FAERS Safety Report 19177326 (Version 1)
Quarter: 2021Q2

REPORT INFORMATION
  Report Type: Spontaneous
  Country: US (occurrence: US)
  Receive Date: 20210425
  Receipt Date: 20210425
  Transmission Date: 20210717
  Serious: No
  Sender: FDA-Public Use
  Company Number: US-PERRIGO-21US001801

PATIENT
  Age: 90 Year
  Sex: Female
  Weight: 48.07 kg

DRUGS (2)
  1. CICLOPIROX OLAMINE. [Suspect]
     Active Substance: CICLOPIROX OLAMINE
     Indication: FUNGAL INFECTION
     Dosage: UNKNOWN, QD
     Route: 061
     Dates: start: 2018
  2. CICLOPIROX OLAMINE. [Suspect]
     Active Substance: CICLOPIROX OLAMINE
     Indication: PROPHYLAXIS
     Dosage: UNKNOWN, BID
     Route: 061
     Dates: start: 2018, end: 2018

REACTIONS (2)
  - Inappropriate schedule of product administration [Not Recovered/Not Resolved]
  - Off label use [Not Recovered/Not Resolved]

NARRATIVE: CASE EVENT DATE: 2018
